FAERS Safety Report 4414771-1 (Version None)
Quarter: 2004Q3

REPORT INFORMATION
  Report Type: 
  Country: None (occurrence: None)
  Receive Date: 20040804
  Receipt Date: 20030909
  Transmission Date: 20050211
  Serious: No
  Sender: FDA-Public Use
  Company Number: US-BRISTOL-MYERS SQUIBB COMPANY-12378451

PATIENT
  Age: 59 Year
  Sex: Female
  Weight: 122 kg

DRUGS (3)
  1. GLUCOVANCE [Suspect]
     Indication: DIABETES MELLITUS
     Dosage: 5MG/500MG TABLETS
     Route: 048
     Dates: start: 20030905, end: 20030908
  2. LOTREL [Concomitant]
  3. ESTROGEN [Concomitant]

REACTIONS (2)
  - DIARRHOEA [None]
  - GASTRIC DISORDER [None]
